FAERS Safety Report 6999501-1 (Version None)
Quarter: 2010Q3

REPORT INFORMATION
  Report Type: 
  Country: None (occurrence: None)
  Receive Date: 20100920
  Receipt Date: 20100608
  Transmission Date: 20110219
  Serious: No
  Sender: FDA-Public Use
  Company Number: US-ASTRAZENECA-2010SE26522

PATIENT
  Age: 41 Year
  Sex: Male

DRUGS (2)
  1. SEROQUEL [Suspect]
     Indication: AGITATION
     Dosage: 100 MG 1 1/2 TO 2 TABLETS AT NIGHT
     Route: 048
     Dates: start: 20070101
  2. SEROQUEL [Suspect]
     Indication: SLEEP DISORDER
     Dosage: 100 MG 1 1/2 TO 2 TABLETS AT NIGHT
     Route: 048
     Dates: start: 20070101

REACTIONS (2)
  - INCORRECT DOSE ADMINISTERED [None]
  - PNEUMONIA [None]
